FAERS Safety Report 10224008 (Version 1)
Quarter: 2014Q2

REPORT INFORMATION
  Report Type: Spontaneous
  Country: US (occurrence: US)
  Receive Date: 20140609
  Receipt Date: 20140609
  Transmission Date: 20141212
  Serious: Yes (Hospitalization)
  Sender: FDA-Public Use
  Company Number: US-ASTRAZENECA-2014SE39868

PATIENT
  Age: 73 Year
  Sex: Male

DRUGS (3)
  1. FARXIGA [Suspect]
     Route: 048
  2. LISINOPRIL (NON AZ PRODUCT) [Suspect]
     Route: 065
  3. METFORMIN HCL (NON AZ PRODUCT) [Suspect]
     Route: 065

REACTIONS (3)
  - Sepsis [Unknown]
  - Urinary tract infection [Unknown]
  - Pyelonephritis [Unknown]
